FAERS Safety Report 17202142 (Version 2)
Quarter: 2021Q1

REPORT INFORMATION
  Report Type: Spontaneous
  Country: IT (occurrence: IT)
  Receive Date: 20191226
  Receipt Date: 20210223
  Transmission Date: 20210419
  Serious: Yes (Life-Threatening, Other)
  Sender: FDA-Public Use
  Company Number: IT-PFIZER INC-2019548665

PATIENT
  Age: 31 Year
  Sex: Male

DRUGS (4)
  1. DOXORUBICIN HCL [Suspect]
     Active Substance: DOXORUBICIN HYDROCHLORIDE
     Indication: HODGKIN^S DISEASE
     Dosage: 25 MG/M2, UNK (TWICE MONTHLY)
     Route: 042
     Dates: start: 1994
  2. BLEOMYCIN [Suspect]
     Active Substance: BLEOMYCIN SULFATE
     Indication: HODGKIN^S DISEASE
     Dosage: 10 MG/M2, UNK (TWICE MONTHLY)
     Route: 042
     Dates: start: 1994
  3. DACARBAZINE. [Suspect]
     Active Substance: DACARBAZINE
     Indication: HODGKIN^S DISEASE
     Dosage: 375 MG/M2, UNK (TWICE MONTHLY)
     Route: 042
     Dates: start: 1994
  4. VINBLASTINE [Suspect]
     Active Substance: VINBLASTINE
     Indication: HODGKIN^S DISEASE
     Dosage: 6 MG/M2, UNK (TWICE MONTHLY)
     Route: 042
     Dates: start: 1994

REACTIONS (2)
  - Hepatitis fulminant [Recovered/Resolved]
  - Coma hepatic [Recovered/Resolved]

NARRATIVE: CASE EVENT DATE: 1994
